FAERS Safety Report 6195174-9 (Version None)
Quarter: 2009Q2

REPORT INFORMATION
  Report Type: 
  Country: None (occurrence: None)
  Receive Date: 20090519
  Receipt Date: 20090513
  Transmission Date: 20091009
  Serious: Yes (Hospitalization)
  Sender: FDA-Public Use
  Company Number: US-BAYER-200713521BWH

PATIENT
  Age: 88 Year
  Sex: Male

DRUGS (5)
  1. DACARBAZINE [Suspect]
     Indication: MALIGNANT MELANOMA
     Route: 042
     Dates: start: 20070801
  2. DACARBAZINE [Suspect]
     Route: 042
     Dates: start: 20070821
  3. MDX-010 OR PLACEBO [Suspect]
     Indication: MALIGNANT MELANOMA
     Route: 042
     Dates: start: 20070821
  4. MDX-010 OR PLACEBO [Suspect]
     Route: 042
     Dates: start: 20070801
  5. PAIN PATCHES [Concomitant]

REACTIONS (3)
  - CONFUSIONAL STATE [None]
  - HYPONATRAEMIA [None]
  - TUMOUR PAIN [None]
